FAERS Safety Report 7460514-7 (Version None)
Quarter: 2011Q2

REPORT INFORMATION
  Report Type: 
  Country: None (occurrence: None)
  Receive Date: 20110505
  Receipt Date: 20110427
  Transmission Date: 20111010
  Serious: Yes (Hospitalization, Disabling, Other)
  Sender: FDA-Public Use
  Company Number: US-MERCK-1012USA01614

PATIENT
  Age: 53 Year
  Sex: Female

DRUGS (4)
  1. FOSAMAX [Suspect]
     Indication: OSTEOPENIA
     Route: 048
     Dates: start: 19970101, end: 20030101
  2. CALCIUM (UNSPECIFIED) [Concomitant]
     Route: 065
  3. FOSAMAX [Suspect]
     Route: 048
     Dates: start: 20030101, end: 20070301
  4. ZOCOR [Concomitant]
     Indication: HYPERCHOLESTEROLAEMIA
     Route: 048
     Dates: start: 19970101

REACTIONS (49)
  - WOUND DEHISCENCE [None]
  - IRON DEFICIENCY ANAEMIA [None]
  - SINUSITIS [None]
  - LARYNGITIS [None]
  - OSTEONECROSIS OF JAW [None]
  - BASAL CELL CARCINOMA [None]
  - BREAST INFECTION [None]
  - OPEN WOUND [None]
  - GINGIVITIS [None]
  - MENISCUS LESION [None]
  - CEREBRAL SMALL VESSEL ISCHAEMIC DISEASE [None]
  - BLADDER DISORDER [None]
  - HERNIA [None]
  - CELLULITIS [None]
  - ECZEMA [None]
  - HEPATIC CYST [None]
  - EXOSTOSIS [None]
  - TOOTH INFECTION [None]
  - TOOTH ABSCESS [None]
  - ASTHMA [None]
  - STAPHYLOCOCCAL INFECTION [None]
  - PSEUDOMONAS INFECTION [None]
  - ABSCESS [None]
  - BREAST MASS [None]
  - MELANOSIS COLI [None]
  - BURSITIS [None]
  - HAEMORRHOIDS [None]
  - FISTULA [None]
  - TOOTH FRACTURE [None]
  - TONGUE GEOGRAPHIC [None]
  - MELANOCYTIC NAEVUS [None]
  - DIVERTICULUM [None]
  - INFECTION [None]
  - HOT FLUSH [None]
  - NAUSEA [None]
  - BONE LOSS [None]
  - INTERVERTEBRAL DISC DEGENERATION [None]
  - TENDON DISORDER [None]
  - FOOD ALLERGY [None]
  - SCOLIOSIS [None]
  - RIB FRACTURE [None]
  - ROSACEA [None]
  - ACTINIC KERATOSIS [None]
  - OSTEOARTHRITIS [None]
  - WOUND INFECTION [None]
  - OSTEOMYELITIS [None]
  - ALOPECIA [None]
  - GASTROOESOPHAGEAL REFLUX DISEASE [None]
  - MILIA [None]
